FAERS Safety Report 9969405 (Version 2)
Quarter: 2014Q1

REPORT INFORMATION
  Report Type: Spontaneous
  Country: IT (occurrence: IT)
  Receive Date: 20140306
  Receipt Date: 20140327
  Transmission Date: 20141002
  Serious: Yes (Other)
  Sender: FDA-Public Use
  Company Number: IT-BEH-2014041020

PATIENT
  Age: 68 Year
  Sex: Male

DRUGS (3)
  1. INTRAVENOUS IMMUNOGLOBULINS [Suspect]
     Indication: PEMPHIGUS
  2. INTRAVENOUS CORTICOSTEROIDS [Suspect]
     Indication: PEMPHIGUS
  3. RITUXIMAB [Suspect]
     Indication: PEMPHIGUS

REACTIONS (3)
  - Immunosuppression [Unknown]
  - Kaposi^s sarcoma [Unknown]
  - Drug ineffective for unapproved indication [Unknown]
